FAERS Safety Report 5375556-5 (Version None)
Quarter: 2007Q2

REPORT INFORMATION
  Report Type: 
  Country: None (occurrence: None)
  Receive Date: 20070629
  Receipt Date: 20070618
  Transmission Date: 20071010
  Serious: Yes (Hospitalization)
  Sender: FDA-Public Use
  Company Number: CH-GENENTECH-237658

PATIENT
  Sex: Female

DRUGS (9)
  1. AVASTIN [Suspect]
     Indication: COLON CANCER METASTATIC
     Dosage: 300 MG, UNK
     Route: 042
     Dates: start: 20060726, end: 20070206
  2. FLUOROURACIL [Suspect]
     Indication: COLON CANCER
     Dosage: 450 MG, UNK
     Route: 042
     Dates: start: 20060426, end: 20070206
  3. IRINOTECAN HCL [Suspect]
     Indication: COLON CANCER
     Dosage: 300 MG, UNK
     Route: 042
     Dates: start: 20060426, end: 20070206
  4. IBUPROFEN [Suspect]
     Indication: ABDOMINAL PAIN UPPER
     Dosage: 600 MG, TID
     Route: 048
     Dates: start: 20061225, end: 20070114
  5. NEXIUM [Suspect]
     Indication: GASTRITIS
     Dosage: 40 MG, BID
     Route: 048
     Dates: start: 20070209, end: 20070227
  6. PARACETAMOL [Concomitant]
     Indication: PAIN
     Dates: start: 20070101
  7. TIZANIDINE HCL [Concomitant]
     Indication: ABDOMINAL PAIN
  8. PANTOPRAZOLE SODIUM [Concomitant]
     Indication: GASTRITIS
  9. OXAZEPAM [Concomitant]
     Indication: ANXIETY DISORDER

REACTIONS (2)
  - LIPASE INCREASED [None]
  - PANCREATITIS [None]
